FAERS Safety Report 21364667 (Version 1)
Quarter: 2022Q3

REPORT INFORMATION
  Report Type: Spontaneous
  Country: AU (occurrence: None)
  Receive Date: 20220922
  Receipt Date: 20220922
  Transmission Date: 20221027
  Serious: Yes (Death)
  Sender: FDA-Public Use
  Company Number: 2022A321914

PATIENT

DRUGS (1)
  1. DURVALUMAB [Suspect]
     Active Substance: DURVALUMAB
     Dosage: DOSE UNKNWON
     Route: 058

REACTIONS (2)
  - Disease progression [Fatal]
  - Haemorrhage [Fatal]

NARRATIVE: CASE EVENT DATE: 20220916
